FAERS Safety Report 5511769-7 (Version None)
Quarter: 2007Q4

REPORT INFORMATION
  Report Type: 
  Country: None (occurrence: None)
  Receive Date: 20071109
  Receipt Date: 20071030
  Transmission Date: 20080405
  Serious: Yes (Other)
  Sender: FDA-Public Use
  Company Number: GB-PFIZER INC-2007087392

PATIENT
  Sex: Female
  Weight: 76.4 kg

DRUGS (4)
  1. CHAMPIX [Suspect]
     Indication: SMOKING CESSATION THERAPY
     Route: 048
     Dates: start: 20070913, end: 20070924
  2. ATENOLOL [Concomitant]
  3. LERCANIDIPINE [Concomitant]
  4. SIMVASTATIN [Concomitant]

REACTIONS (7)
  - AMNESIA [None]
  - ANXIETY [None]
  - BLOOD PRESSURE INCREASED [None]
  - CONFUSIONAL STATE [None]
  - HALLUCINATION [None]
  - NERVOUSNESS [None]
  - PANIC REACTION [None]
